FAERS Safety Report 15253298 (Version 1)
Quarter: 2018Q3

REPORT INFORMATION
  Report Type: Spontaneous
  Country: NZ (occurrence: NZ)
  Receive Date: 20180807
  Receipt Date: 20180807
  Transmission Date: 20181010
  Serious: Yes (Other)
  Sender: FDA-Public Use
  Company Number: NZ-BAXTER-2018BAX020732

PATIENT
  Sex: Female

DRUGS (6)
  1. GLUCOSE INJECTION, 5%, SOLUTION FOR INFUSION [Suspect]
     Active Substance: DEXTROSE
     Indication: MEDICATION DILUTION
     Dosage: 2 X 18G19AM00147 (1 INFUSED (20JUL2018) IN HOSPITAL, 1 INFUSED (21JUL2018) AT HOME)
     Route: 065
     Dates: start: 20180720, end: 20180721
  2. WATER FOR INJECTION [Suspect]
     Active Substance: WATER
     Indication: MEDICATION DILUTION
     Dosage: 2 X 18G19AM00147 (1 INFUSED (20JUL2018) IN HOSPITAL, 1 INFUSED (21JUL2018) AT HOME)
     Route: 065
     Dates: start: 20180720, end: 20180721
  3. AMBISOME [Suspect]
     Active Substance: AMPHOTERICIN B
     Indication: FUNGAL INFECTION
     Dosage: 2 X 18G19AM00147 (1 INFUSED (20JUL2018) IN HOSPITAL, 1 INFUSED (21JUL2018) AT HOME)
     Route: 065
     Dates: start: 20180720, end: 20180721
  4. AMBISOME [Suspect]
     Active Substance: AMPHOTERICIN B
     Dosage: 2 X 18G20CM00120 (BOTH INFUSED AT HOME)
     Route: 065
     Dates: start: 20180722, end: 20180723
  5. GLUCOSE INJECTION, 5%, SOLUTION FOR INFUSION [Suspect]
     Active Substance: DEXTROSE
     Dosage: 2 X 18G20CM00120 (BOTH INFUSED AT HOME)
     Route: 065
     Dates: start: 20180722, end: 20180723
  6. WATER FOR INJECTION [Suspect]
     Active Substance: WATER
     Dosage: 2 X 18G20CM00120 (BOTH INFUSED AT HOME)
     Route: 065
     Dates: start: 20180722, end: 20180723

REACTIONS (3)
  - Renal failure [Recovering/Resolving]
  - Drug administration error [Unknown]
  - Incorrect drug administration rate [Unknown]

NARRATIVE: CASE EVENT DATE: 201807
